FAERS Safety Report 15901369 (Version 4)
Quarter: 2019Q3

REPORT INFORMATION
  Report Type: Report from Study
  Country: US (occurrence: US)
  Receive Date: 20190201
  Receipt Date: 20190820
  Transmission Date: 20191004
  Serious: No
  Sender: FDA-Public Use
  Company Number: PHEH2019US004547

PATIENT
  Age: 19 Year
  Sex: Female

DRUGS (2)
  1. COSENTYX [Suspect]
     Active Substance: SECUKINUMAB
     Indication: PSORIASIS
     Route: 058
     Dates: start: 20190127
  2. COSENTYX [Suspect]
     Active Substance: SECUKINUMAB
     Dosage: 300 MG, QMO
     Route: 058
     Dates: start: 20190103

REACTIONS (5)
  - Malaise [Unknown]
  - Injection site swelling [Unknown]
  - Injection site bruising [Unknown]
  - Injection site haemorrhage [Unknown]
  - Drug ineffective [Unknown]

NARRATIVE: CASE EVENT DATE: 20190127
